FAERS Safety Report 24686372 (Version 1)
Quarter: 2024Q4

REPORT INFORMATION
  Report Type: Spontaneous
  Country: CA (occurrence: CA)
  Receive Date: 20241202
  Receipt Date: 20241202
  Transmission Date: 20250115
  Serious: Yes (Other)
  Sender: PFIZER
  Company Number: CA-PFIZER INC-202400312179

PATIENT
  Sex: Female

DRUGS (3)
  1. EXEMESTANE [Suspect]
     Active Substance: EXEMESTANE
     Dosage: UNK
     Route: 065
  2. AFINITOR [Suspect]
     Active Substance: EVEROLIMUS
     Dosage: UNK
     Route: 065
  3. FASLODEX [Suspect]
     Active Substance: FULVESTRANT
     Dosage: UNK
     Route: 065

REACTIONS (2)
  - Generalised oedema [Unknown]
  - Neoplasm progression [Unknown]
